FAERS Safety Report 7523382-0 (Version None)
Quarter: 2011Q2

REPORT INFORMATION
  Report Type: 
  Country: None (occurrence: None)
  Receive Date: 20110603
  Receipt Date: 20110524
  Transmission Date: 20111010
  Serious: Yes (Other)
  Sender: FDA-Public Use
  Company Number: B0721842A

PATIENT
  Age: 38 Year
  Sex: Male
  Weight: 61 kg

DRUGS (2)
  1. VITAMIN K ANTAGONIST [Concomitant]
  2. ARIXTRA [Suspect]
     Indication: ATRIAL FIBRILLATION
     Dosage: 2.5MG PER DAY
     Route: 058
     Dates: start: 20110425, end: 20110501

REACTIONS (2)
  - DYSPNOEA [None]
  - HAEMORRHAGE INTRACRANIAL [None]
